FAERS Safety Report 25623808 (Version 1)
Quarter: 2025Q3

REPORT INFORMATION
  Report Type: Report from Study
  Country: HN (occurrence: HN)
  Receive Date: 20250730
  Receipt Date: 20250730
  Transmission Date: 20251020
  Serious: Yes (Hospitalization)
  Sender: NOVARTIS
  Company Number: HN-002147023-NVSC2025HN119643

PATIENT
  Sex: Male

DRUGS (4)
  1. EXFORGE HCT [Suspect]
     Active Substance: AMLODIPINE BESYLATE\HYDROCHLOROTHIAZIDE\VALSARTAN
     Indication: Hypertension
     Dosage: 5/160/12.5 MG, QD
     Route: 048
  2. EXFORGE HCT [Suspect]
     Active Substance: AMLODIPINE BESYLATE\HYDROCHLOROTHIAZIDE\VALSARTAN
     Dosage: 10/320/25 MG, QD
     Route: 048
     Dates: start: 202502, end: 202504
  3. EXFORGE [Suspect]
     Active Substance: AMLODIPINE BESYLATE\VALSARTAN
     Indication: Hypertension
     Dosage: 5/320MG, QD
     Route: 048
     Dates: start: 2024, end: 202502
  4. EXFORGE [Suspect]
     Active Substance: AMLODIPINE BESYLATE\VALSARTAN
     Dosage: 10/320MG, QD
     Route: 048
     Dates: start: 202504

REACTIONS (3)
  - Drug intolerance [Unknown]
  - Blood sodium decreased [Unknown]
  - Blood electrolytes decreased [Unknown]
